FAERS Safety Report 22193271 (Version 9)
Quarter: 2025Q4

REPORT INFORMATION
  Report Type: Spontaneous
  Country: US (occurrence: US)
  Receive Date: 20230410
  Receipt Date: 20251210
  Transmission Date: 20260117
  Serious: Yes (Other)
  Sender: PFIZER
  Company Number: US-PFIZER INC-PV202200098908

PATIENT
  Age: 29 Year
  Sex: Male

DRUGS (2)
  1. BENEFIX [Suspect]
     Active Substance: COAGULATION FACTOR IX RECOMBINANT HUMAN\ISOPROPYL ALCOHOL
     Indication: Haemorrhage prophylaxis
     Dosage: 7000 IU (100 IU/KG) (+/-10%) PRN EVERY 12-24 HRS AS DIRECTED BY HTC
     Route: 042
  2. BENEFIX [Suspect]
     Active Substance: COAGULATION FACTOR IX RECOMBINANT HUMAN\ISOPROPYL ALCOHOL
     Dosage: INFUSE 8000 UNITS +/-10 % (100 UNITS/KG) SLOW IV PUSH EVERY 12- 24 HOURS AS NEEDED
     Route: 042

REACTIONS (3)
  - Haemorrhage [Unknown]
  - Pain [Unknown]
  - Injury [Unknown]

NARRATIVE: CASE EVENT DATE: 20250803
